FAERS Safety Report 5503646-2 (Version None)
Quarter: 2007Q4

REPORT INFORMATION
  Report Type: 
  Country: None (occurrence: None)
  Receive Date: 20071101
  Receipt Date: 20071025
  Transmission Date: 20080405
  Serious: Yes (Hospitalization, Other)
  Sender: FDA-Public Use
  Company Number: PHEH2007US04893

PATIENT
  Age: 56 Year
  Sex: Female
  Weight: 107.94 kg

DRUGS (4)
  1. ZELNORM [Suspect]
     Dosage: UNK, UNK
     Route: 048
     Dates: end: 20060201
  2. ZELNORM [Suspect]
     Dosage: UNK, UNK
     Route: 048
     Dates: start: 20060201, end: 20061201
  3. ZELNORM [Suspect]
     Dosage: UNK, PRN
     Route: 048
     Dates: start: 20061201
  4. HYDROCHLOROTHIAZIDE [Concomitant]
     Dates: end: 20060218

REACTIONS (5)
  - ATELECTASIS [None]
  - BLOOD POTASSIUM DECREASED [None]
  - CARDIAC DISORDER [None]
  - CHEST PAIN [None]
  - DIZZINESS [None]
